FAERS Safety Report 20440471 (Version 2)
Quarter: 2022Q3

REPORT INFORMATION
  Report Type: Spontaneous
  Country: US (occurrence: US)
  Receive Date: 20220207
  Receipt Date: 20220829
  Transmission Date: 20221027
  Serious: Yes (Other)
  Sender: FDA-Public Use
  Company Number: US-SA-SAC20220204000321

PATIENT
  Age: 51 Year
  Sex: Female
  Weight: 76 kg

DRUGS (13)
  1. DUPIXENT [Suspect]
     Active Substance: DUPILUMAB
     Indication: Dermatitis
     Dosage: 300MG, QOW
     Route: 058
     Dates: start: 20190118
  2. DUPIXENT [Suspect]
     Active Substance: DUPILUMAB
     Indication: Dermatitis atopic
  3. WELLBUTRIN SR [Concomitant]
     Active Substance: BUPROPION HYDROCHLORIDE
     Dosage: UNK UNK, QD
  4. ADIPEX-P [Concomitant]
     Active Substance: PHENTERMINE HYDROCHLORIDE
  5. VITAMIN D3 [Concomitant]
     Active Substance: CHOLECALCIFEROL
  6. LEVOCETIRIZINE DIHYDROCHLORIDE [Concomitant]
     Active Substance: LEVOCETIRIZINE DIHYDROCHLORIDE
  7. CLONAZEPAM [Concomitant]
     Active Substance: CLONAZEPAM
  8. CALCIUM [Concomitant]
     Active Substance: CALCIUM
  9. ANASTROZOLE [Concomitant]
     Active Substance: ANASTROZOLE
  10. ZINC [Concomitant]
     Active Substance: ZINC
  11. VITAMIN C [Concomitant]
     Active Substance: ASCORBIC ACID
  12. DIETARY SUPPLEMENT\HERBALS\MILK THISTLE [Concomitant]
     Active Substance: DIETARY SUPPLEMENT\HERBALS\MILK THISTLE
  13. FISH OIL [Concomitant]
     Active Substance: FISH OIL

REACTIONS (2)
  - Breast cancer female [Unknown]
  - Product use in unapproved indication [Unknown]
